FAERS Safety Report 7612142-8 (Version None)
Quarter: 2011Q3

REPORT INFORMATION
  Report Type: 
  Country: None (occurrence: None)
  Receive Date: 20110715
  Receipt Date: 20110706
  Transmission Date: 20111222
  Serious: Yes (Hospitalization)
  Sender: FDA-Public Use
  Company Number: FR-ALLERGAN-1109514US

PATIENT
  Age: 73 Year
  Sex: Female

DRUGS (11)
  1. ESCITALOPRAM OXALATE [Suspect]
     Indication: DEPRESSION
     Dosage: 10 MG, QD
     Route: 048
  2. XANAX [Concomitant]
     Indication: DEPRESSION
     Dosage: UNK
  3. LEVOTHYROXINE SODIUM [Concomitant]
     Indication: PRODUCT USED FOR UNKNOWN INDICATION
  4. IMOVAN [Suspect]
     Indication: INSOMNIA
     Dosage: 7.5 MG, QD
     Route: 048
  5. ATHIMIL [Concomitant]
     Indication: PRODUCT USED FOR UNKNOWN INDICATION
  6. LOVENOX [Concomitant]
     Indication: PRODUCT USED FOR UNKNOWN INDICATION
  7. ALENDRONATE SODIUM [Concomitant]
     Indication: PRODUCT USED FOR UNKNOWN INDICATION
  8. AMLODIPINE BESYLATE [Concomitant]
     Indication: PRODUCT USED FOR UNKNOWN INDICATION
  9. CRESTOR [Concomitant]
     Indication: PRODUCT USED FOR UNKNOWN INDICATION
  10. TROSPIUM CHLORIDE [Suspect]
     Indication: MICTURITION DISORDER
     Dosage: 20 MG, QD
     Route: 048
     Dates: end: 20110510
  11. DITROPAN [Suspect]
     Indication: MICTURITION DISORDER
     Dosage: 1 DF, QD
     Route: 048
     Dates: end: 20110510

REACTIONS (4)
  - COGNITIVE DISORDER [None]
  - MEMORY IMPAIRMENT [None]
  - DRY MOUTH [None]
  - FALL [None]
